FAERS Safety Report 19148711 (Version 1)
Quarter: 2021Q2

REPORT INFORMATION
  Report Type: Spontaneous
  Country: JP (occurrence: JP)
  Receive Date: 20210417
  Receipt Date: 20210417
  Transmission Date: 20210717
  Serious: Yes (Other)
  Sender: FDA-Public Use
  Company Number: JP-SUN PHARMACEUTICAL INDUSTRIES LTD-2021RR-291604

PATIENT
  Age: 16 Year
  Sex: Female

DRUGS (7)
  1. ASPIRIN. [Suspect]
     Active Substance: ASPIRIN
     Indication: PRODUCT USED FOR UNKNOWN INDICATION
     Dosage: 1 MILLIGRAM/ BODY WEIGHT
     Route: 065
  2. ESOMEPRAZOLE. [Suspect]
     Active Substance: ESOMEPRAZOLE MAGNESIUM
     Indication: GASTRIC MUCOSAL LESION
     Dosage: 20 MILLIGRAM, DAILY
     Route: 065
  3. ECABET SODIUM [Suspect]
     Active Substance: ECABET SODIUM
     Indication: GASTRIC MUCOSAL LESION
     Dosage: 2000 MILLIGRAM, DAILY
     Route: 065
  4. ENALAPRIL [Concomitant]
     Active Substance: ENALAPRIL
     Indication: PRODUCT USED FOR UNKNOWN INDICATION
     Dosage: 5 MILLIGRAM, DAILY
     Route: 065
  5. SODIUM ALGINATE [Suspect]
     Active Substance: SODIUM ALGINATE
     Indication: GASTRIC MUCOSAL LESION
     Dosage: 3000 MILLIGRAM, DAILY
     Route: 065
  6. DIGOXIN. [Concomitant]
     Active Substance: DIGOXIN
     Indication: PRODUCT USED FOR UNKNOWN INDICATION
     Dosage: 0.25 MILLIGRAM, DAILY
     Route: 065
  7. ASPIRIN. [Suspect]
     Active Substance: ASPIRIN
     Dosage: 100 MILLIGRAM, DAILY
     Route: 065

REACTIONS (3)
  - Disease recurrence [Unknown]
  - Therapeutic product effect incomplete [Unknown]
  - Gastric mucosal lesion [Unknown]
